FAERS Safety Report 5571701-7 (Version None)
Quarter: 2007Q4

REPORT INFORMATION
  Report Type: 
  Country: None (occurrence: None)
  Receive Date: 20071221
  Receipt Date: 20071217
  Transmission Date: 20080405
  Serious: Yes (Hospitalization, Congenital Anomaly)
  Sender: FDA-Public Use
  Company Number: A0669269A

PATIENT
  Sex: Male
  Weight: 4.1 kg

DRUGS (1)
  1. PAXIL [Suspect]
     Indication: DEPRESSION
     Dosage: 40MG UNKNOWN

REACTIONS (30)
  - AORTA HYPOPLASIA [None]
  - AORTIC VALVE INCOMPETENCE [None]
  - ATRIAL SEPTAL DEFECT [None]
  - BRADYCARDIA [None]
  - BUNDLE BRANCH BLOCK [None]
  - CARDIAC MURMUR [None]
  - CARDIOMEGALY [None]
  - COARCTATION OF THE AORTA [None]
  - CONGENITAL TRICUSPID VALVE ATRESIA [None]
  - CYANOSIS [None]
  - DANDY-WALKER SYNDROME [None]
  - DEXTROCARDIA [None]
  - DILATATION ATRIAL [None]
  - DRUG EXPOSURE DURING PREGNANCY [None]
  - FOETAL MACROSOMIA [None]
  - HEART VALVE INCOMPETENCE [None]
  - HYPOXIA [None]
  - LEFT VENTRICULAR HYPERTROPHY [None]
  - MITRAL VALVE DISEASE [None]
  - MITRAL VALVE INCOMPETENCE [None]
  - NEONATAL DISORDER [None]
  - PATENT DUCTUS ARTERIOSUS [None]
  - PNEUMONITIS [None]
  - PNEUMOTHORAX [None]
  - PNEUMOTHORAX TRAUMATIC [None]
  - POST PROCEDURAL COMPLICATION [None]
  - STRIDOR [None]
  - TRANSPOSITION OF THE GREAT VESSELS [None]
  - VENTRICULAR HYPOPLASIA [None]
  - VENTRICULAR SEPTAL DEFECT [None]
